FAERS Safety Report 8314613-8 (Version None)
Quarter: 2012Q2

REPORT INFORMATION
  Report Type: 
  Country: None (occurrence: None)
  Receive Date: 20120426
  Receipt Date: 19950721
  Transmission Date: 20120825
  Serious: Yes (Hospitalization)
  Sender: FDA-Public Use
  Company Number: FR-ROCHE-49020

PATIENT
  Age: 55 Year
  Sex: Female

DRUGS (2)
  1. FLUOROURACIL [Suspect]
     Indication: PRODUCT USED FOR UNKNOWN INDICATION
     Dosage: FORM STRENGTH=250 MG/5ML
     Route: 042
     Dates: start: 19950421, end: 19950425
  2. KYTRIL [Suspect]
     Indication: PRODUCT USED FOR UNKNOWN INDICATION
     Dosage: FORM STRENGTH=1 MG/ML
     Route: 042
     Dates: start: 19950421, end: 19950425

REACTIONS (3)
  - BONE MARROW FAILURE [None]
  - DIARRHOEA [None]
  - SKIN EXFOLIATION [None]
